FAERS Safety Report 25337367 (Version 1)
Quarter: 2025Q2

REPORT INFORMATION
  Report Type: Spontaneous
  Country: US (occurrence: None)
  Receive Date: 20250519
  Receipt Date: 20250519
  Transmission Date: 20250717
  Serious: Yes (Disabling)
  Sender: FDA-CTU
  Company Number: None

PATIENT
  Age: 46 Year
  Sex: Female
  Weight: 65.77 kg

DRUGS (8)
  1. DEVICE [Suspect]
     Active Substance: DEVICE
     Indication: Corrective lens user
     Route: 050
     Dates: start: 20240901, end: 20241105
  2. DEVICE [Suspect]
     Active Substance: DEVICE
  3. OXERVATE [Suspect]
     Active Substance: CENEGERMIN-BKBJ
  4. GABAPENTIN [Concomitant]
     Active Substance: GABAPENTIN
  5. RITUXAN [Concomitant]
     Active Substance: RITUXIMAB
  6. VITAMIN B COMPLEX [Concomitant]
     Active Substance: CYANOCOBALAMIN\DEXPANTHENOL\NIACINAMIDE\PYRIDOXINE HYDROCHLORIDE\RIBOFLAVIN 5^-PHOSPHATE SODIUM\THIA
  7. VITAMIN D3 [Concomitant]
     Active Substance: CHOLECALCIFEROL
  8. Woman^s multi vitamin [Concomitant]

REACTIONS (4)
  - Recalled product [None]
  - Recalled product administered [None]
  - Myopia [None]
  - Corneal abrasion [None]

NARRATIVE: CASE EVENT DATE: 20241105
